FAERS Safety Report 21999269 (Version 2)
Quarter: 2023Q4

REPORT INFORMATION
  Report Type: Spontaneous
  Country: US (occurrence: US)
  Receive Date: 20230216
  Receipt Date: 20231001
  Transmission Date: 20240109
  Serious: Yes (Death, Congenital Anomaly, Other)
  Sender: FDA-Public Use
  Company Number: US-SA-SAC20230215001108

PATIENT
  Sex: Female

DRUGS (1)
  1. DUPIXENT [Suspect]
     Active Substance: DUPILUMAB
     Indication: Nasal polyps
     Dosage: 300 MG, QOW
     Route: 064

REACTIONS (7)
  - Congenital high airway obstruction syndrome [Fatal]
  - Ascites [Fatal]
  - Talipes [Fatal]
  - Foetal cardiac disorder [Unknown]
  - Gastrointestinal malformation [Unknown]
  - Foetal growth restriction [Unknown]
  - Foetal exposure during pregnancy [Unknown]
